FAERS Safety Report 6188114-X (Version None)
Quarter: 2009Q2

REPORT INFORMATION
  Report Type: 
  Country: None (occurrence: None)
  Receive Date: 20090513
  Receipt Date: 20090319
  Transmission Date: 20091009
  Serious: Yes (Disabling)
  Sender: FDA-Public Use
  Company Number: AU-TEVA-186600ISR

PATIENT

DRUGS (3)
  1. COPAXONE [Suspect]
     Indication: MULTIPLE SCLEROSIS
     Route: 058
     Dates: start: 20081201
  2. MESALAZINE [Concomitant]
     Indication: INFLAMMATORY BOWEL DISEASE
  3. BACLOFEN [Concomitant]
     Route: 048
     Dates: start: 20090101

REACTIONS (1)
  - ALOPECIA [None]
